FAERS Safety Report 20146656 (Version 1)
Quarter: 2021Q4

REPORT INFORMATION
  Report Type: Report from Study
  Country: BR (occurrence: BR)
  Receive Date: 20211203
  Receipt Date: 20211203
  Transmission Date: 20220303
  Serious: Yes (Other)
  Sender: FDA-Public Use
  Company Number: BR-NOVARTISPH-NVSC2021BR275416

PATIENT
  Age: 29 Year
  Sex: Female

DRUGS (8)
  1. OMALIZUMAB [Suspect]
     Active Substance: OMALIZUMAB
     Indication: Chronic spontaneous urticaria
     Dosage: 300 MG (EVERY 4 WEEKS)
     Route: 058
     Dates: start: 201309
  2. LORATADINE [Suspect]
     Active Substance: LORATADINE
     Indication: Antiallergic therapy
     Dosage: UNK
     Route: 065
  3. CYCLOSPORINE [Suspect]
     Active Substance: CYCLOSPORINE
     Indication: Immunosuppressant drug therapy
     Dosage: 1.6 MG/KG (100MG/DAY)
     Route: 065
  4. FEXOFENADINE [Suspect]
     Active Substance: FEXOFENADINE HYDROCHLORIDE
     Indication: Antiallergic therapy
     Dosage: UNK
     Route: 065
  5. LEVOCETIRIZINE [Suspect]
     Active Substance: LEVOCETIRIZINE
     Indication: Antiallergic therapy
     Dosage: UNK
     Route: 065
  6. BILASTINE [Suspect]
     Active Substance: BILASTINE
     Indication: Antiallergic therapy
     Dosage: UNK
     Route: 065
  7. RUPATADINE [Suspect]
     Active Substance: RUPATADINE
     Indication: Antiallergic therapy
     Dosage: UNK
     Route: 065
  8. CHLOROQUINE [Concomitant]
     Active Substance: CHLOROQUINE
     Indication: Product used for unknown indication
     Dosage: UNK
     Route: 065

REACTIONS (12)
  - B-cell lymphoma [Recovered/Resolved]
  - Weight decreased [Unknown]
  - Lymphadenopathy [Unknown]
  - Pyrexia [Unknown]
  - COVID-19 [Unknown]
  - Rhinorrhoea [Unknown]
  - Urticaria [Recovering/Resolving]
  - Oropharyngeal discomfort [Unknown]
  - Pruritus [Unknown]
  - Chronic spontaneous urticaria [Unknown]
  - Condition aggravated [Unknown]
  - Treatment failure [Unknown]

NARRATIVE: CASE EVENT DATE: 20130101
